FAERS Safety Report 21309948 (Version 1)
Quarter: 2022Q3

REPORT INFORMATION
  Report Type: Spontaneous
  Country: US (occurrence: US)
  Receive Date: 20220909
  Receipt Date: 20220909
  Transmission Date: 20221026
  Serious: Yes (Other)
  Sender: FDA-Public Use
  Company Number: US-STRIDES ARCOLAB LIMITED-2021SP030410

PATIENT

DRUGS (3)
  1. TACROLIMUS [Interacting]
     Active Substance: TACROLIMUS
     Indication: Renal transplant
     Dosage: UNK,INITIAL DOSE NOT STATED. BEFORE THE INITIATION OF THIS DUAL THERAPY, TACROLIMUS DOSAGE WAS REDUC
     Route: 065
  2. TACROLIMUS [Interacting]
     Active Substance: TACROLIMUS
     Dosage: UNK (THE DOSAGE WAS REDUCED BY 33% IN ANTICIPATION OF A LETERMOVIR-TACROLIMUS DRUG INTERACTION)
     Route: 065
  3. LETERMOVIR [Interacting]
     Active Substance: LETERMOVIR
     Indication: Cytomegalovirus viraemia
     Dosage: 480 MILLIGRAM, QD
     Route: 065

REACTIONS (3)
  - Drug level increased [Recovered/Resolved]
  - Drug interaction [Unknown]
  - Cytomegalovirus viraemia [Unknown]
